FAERS Safety Report 4718184-4 (Version None)
Quarter: 2005Q3

REPORT INFORMATION
  Report Type: 
  Country: None (occurrence: None)
  Receive Date: 20050718
  Receipt Date: 20050718
  Transmission Date: 20060218
  Serious: Yes (Hospitalization)
  Sender: FDA-Public Use
  Company Number: None

PATIENT
  Age: 57 Year
  Sex: Male
  Weight: 73 kg

DRUGS (3)
  1. AUGMENTIN '125' [Suspect]
     Indication: SINUSITIS
     Dosage: X 2 COURSES
  2. AZITHROMYCIN [Suspect]
  3. DAPSONE [Concomitant]

REACTIONS (3)
  - AGRANULOCYTOSIS [None]
  - BACTERIAL INFECTION [None]
  - NEUTROPENIA [None]
